FAERS Safety Report 9358185 (Version 1)
Quarter: 2013Q2

REPORT INFORMATION
  Report Type: Spontaneous
  Country: US (occurrence: US)
  Receive Date: 20130620
  Receipt Date: 20130620
  Transmission Date: 20140414
  Serious: No
  Sender: FDA-Public Use
  Company Number: US-009507513-1306USA008482

PATIENT
  Age: 38 Year
  Sex: Male

DRUGS (4)
  1. RALTEGRAVIR POTASSIUM [Suspect]
     Indication: ANTIRETROVIRAL THERAPY
     Dosage: 400 MG, BID
     Route: 048
  2. RALTEGRAVIR POTASSIUM [Suspect]
     Dosage: 800 MG, BID
  3. EMTRICITABINE (+) TENOFOVIR DISOPROXIL FUMARATE [Concomitant]
     Indication: ANTIRETROVIRAL THERAPY
     Dosage: 300MG/200MG
  4. RIFAMPIN [Concomitant]
     Indication: DISSEMINATED TUBERCULOSIS

REACTIONS (1)
  - Rash maculo-papular [Recovered/Resolved]
